FAERS Safety Report 11104041 (Version 1)
Quarter: 2015Q2

REPORT INFORMATION
  Report Type: Spontaneous
  Country: CN (occurrence: CN)
  Receive Date: 20150511
  Receipt Date: 20150511
  Transmission Date: 20150821
  Serious: Yes (Hospitalization)
  Sender: FDA-Public Use
  Company Number: CN-GLAXOSMITHKLINE-CN2015GSK060830

PATIENT
  Age: 7 Year
  Sex: Female
  Weight: 23 kg

DRUGS (2)
  1. FLIXOTIDE [Suspect]
     Active Substance: FLUTICASONE PROPIONATE
     Indication: ASTHMA
     Route: 055
  2. SERETIDE [Suspect]
     Active Substance: FLUTICASONE FUROATE\SALMETEROL XINAFOATE
     Indication: ASTHMA
     Dosage: 1 PUFF(S), BID
     Route: 055

REACTIONS (4)
  - Weight decreased [Not Recovered/Not Resolved]
  - Drug ineffective [Unknown]
  - Asthma [Recovering/Resolving]
  - Overdose [Recovered/Resolved]

NARRATIVE: CASE EVENT DATE: 201504
